FAERS Safety Report 7079073-6 (Version None)
Quarter: 2010Q4

REPORT INFORMATION
  Report Type: 
  Country: None (occurrence: None)
  Receive Date: 20101102
  Receipt Date: 20101026
  Transmission Date: 20110411
  Serious: Yes (Hospitalization)
  Sender: FDA-Public Use
  Company Number: FR-ROCHE-734823

PATIENT
  Sex: Male
  Weight: 82 kg

DRUGS (16)
  1. VALGANCICLOVIR HCL [Suspect]
     Route: 065
     Dates: start: 20100926
  2. VALGANCICLOVIR HCL [Suspect]
     Route: 065
  3. MYCOPHENOLATE MOFETIL [Suspect]
     Indication: TRANSPLANT
     Dosage: FREQUENCY: NOT REPORTED
     Route: 048
     Dates: start: 20100830
  4. MYCOPHENOLATE MOFETIL [Suspect]
     Route: 048
  5. EVEROLIMUS [Suspect]
     Indication: TRANSPLANT
     Dosage: FREQUENCY: NOT REPORTED
     Route: 048
     Dates: start: 20100904
  6. EVEROLIMUS [Suspect]
     Route: 048
  7. PREDNISONE [Suspect]
     Indication: TRANSPLANT
     Dosage: FREQUENCY: NOT REPORTED
     Route: 048
     Dates: start: 20100831
  8. PREDNISONE [Suspect]
     Route: 048
  9. SULFAMETHOXAZOLE AND TRIMETHOPRIM [Suspect]
     Dosage: TDD: 400
     Route: 048
     Dates: start: 20100904
  10. ESOMEPRAZOLE [Suspect]
     Route: 048
     Dates: start: 20100908
  11. SERENOA REPENS [Suspect]
     Route: 048
     Dates: start: 20100908
  12. SERENOA REPENS [Suspect]
     Route: 048
     Dates: start: 20101012
  13. BISOPROLOL [Suspect]
     Route: 048
     Dates: start: 20100922
  14. DARBEPOETIN ALFA [Suspect]
     Route: 065
     Dates: start: 20100903
  15. ASPIRIN [Suspect]
     Route: 048
     Dates: start: 20100923
  16. PREVISCAN [Concomitant]
     Route: 048
     Dates: start: 20100925, end: 20101012

REACTIONS (2)
  - CYTOMEGALOVIRUS INFECTION [None]
  - POSTRENAL FAILURE [None]
